FAERS Safety Report 23635270 (Version 3)
Quarter: 2024Q2

REPORT INFORMATION
  Report Type: Report from Study
  Country: KR (occurrence: KR)
  Receive Date: 20240315
  Receipt Date: 20240510
  Transmission Date: 20240715
  Serious: Yes (Hospitalization, Other)
  Sender: FDA-Public Use
  Company Number: KR-IPSEN Group, Research and Development-2024-04097

PATIENT

DRUGS (8)
  1. CABOZANTINIB [Suspect]
     Active Substance: CABOZANTINIB
     Indication: Renal cell carcinoma
     Dosage: 60 MG, QD
     Route: 048
     Dates: start: 20231130, end: 20231227
  2. CABOZANTINIB [Suspect]
     Active Substance: CABOZANTINIB
     Dosage: 40 MG, QD
     Route: 048
     Dates: start: 20240110
  3. BEECOM [Concomitant]
     Indication: Prophylaxis
     Dates: start: 20230721
  4. DEXILANT [Concomitant]
     Active Substance: DEXLANSOPRAZOLE
     Indication: Gastritis
     Route: 048
     Dates: start: 20230721
  5. LIPITOR [Concomitant]
     Active Substance: ATORVASTATIN CALCIUM
     Indication: Hyperlipidaemia
     Dates: start: 20230707
  6. Mucosta sr [Concomitant]
     Indication: Prophylaxis
     Dosage: 150 MG, BID
     Route: 048
     Dates: start: 20230427
  7. TENELIGLIPTIN [Concomitant]
     Active Substance: TENELIGLIPTIN
     Indication: Diabetes mellitus
     Dosage: 20 MG, QD
     Route: 048
     Dates: start: 20170613
  8. URSODIOL [Concomitant]
     Active Substance: URSODIOL
     Indication: Prophylaxis
     Dosage: 100 MG, TID
     Route: 048
     Dates: start: 20230419, end: 20240102

REACTIONS (7)
  - Postoperative wound infection [Recovered/Resolved]
  - Thrombocytopenia [Recovering/Resolving]
  - Alopecia [Recovering/Resolving]
  - Aspartate aminotransferase increased [Recovering/Resolving]
  - Decreased appetite [Recovered/Resolved]
  - Constipation [Recovered/Resolved]
  - Diarrhoea [Recovered/Resolved with Sequelae]

NARRATIVE: CASE EVENT DATE: 20231227
